FAERS Safety Report 10542533 (Version 1)
Quarter: 2014Q4

REPORT INFORMATION
  Report Type: Spontaneous
  Country: CA (occurrence: CA)
  Receive Date: 20141027
  Receipt Date: 20141027
  Transmission Date: 20150529
  Serious: Yes (Other)
  Sender: FDA-Public Use
  Company Number: CA-009507513-1410CAN009513

PATIENT
  Age: 62 Year
  Sex: Female

DRUGS (2)
  1. FOSAVANCE [Suspect]
     Active Substance: ALENDRONATE SODIUM\CHOLECALCIFEROL
     Indication: OSTEOPOROSIS
     Dosage: ONE 70 MG/5600IU TABLET, QW
     Route: 048
  2. GABAPENTIN. [Concomitant]
     Active Substance: GABAPENTIN
     Dosage: 900 MG, HS
     Route: 048

REACTIONS (3)
  - Spinal fracture [Unknown]
  - Fibromyalgia [Unknown]
  - Back injury [Unknown]

NARRATIVE: CASE EVENT DATE: 201405
